FAERS Safety Report 8601070 (Version 3)
Quarter: 2012Q4

REPORT INFORMATION
  Report Type: 
  Country: US (occurrence: US)
  Receive Date: 20120606
  Receipt Date: 20121121
  Transmission Date: 20130627
  Serious: Yes (Hospitalization, Other)
  Sender: FDA-Public Use
  Company Number: US-PFIZER INC-2012132691

PATIENT
  Age: 47 Year
  Sex: Male

DRUGS (5)
  1. LYRICA [Suspect]
     Indication: SEIZURES
     Dosage: 100 mg, 2x/day
     Route: 048
     Dates: start: 20120411
  2. LYRICA [Suspect]
     Dosage: 200 mg, 2x/day
     Route: 048
     Dates: end: 20120522
  3. TEGRETOL [Concomitant]
     Dosage: UNK
  4. FENOBARBITAL [Concomitant]
     Dosage: UNK
  5. CARBAMAZEPINE [Concomitant]
     Dosage: 400 mg daily

REACTIONS (5)
  - Status epilepticus [Recovered/Resolved]
  - Activities of daily living impaired [Unknown]
  - Mutism [Unknown]
  - Ataxia [Unknown]
  - Electroencephalogram abnormal [Unknown]
